FAERS Safety Report 4701429-4 (Version None)
Quarter: 2005Q2

REPORT INFORMATION
  Report Type: 
  Country: None (occurrence: None)
  Receive Date: 20050628
  Receipt Date: 20050603
  Transmission Date: 20051028
  Serious: Yes (Other)
  Sender: FDA-Public Use
  Company Number: US-ROCHE-406708

PATIENT
  Age: 25 Year
  Sex: Male

DRUGS (4)
  1. PEGASYS [Suspect]
     Route: 058
     Dates: start: 20050425
  2. COPEGUS [Suspect]
     Route: 048
     Dates: start: 20050425, end: 20050503
  3. COPEGUS [Suspect]
     Route: 048
     Dates: start: 20050507, end: 20050520
  4. COPEGUS [Suspect]
     Route: 048
     Dates: start: 20050521, end: 20050526

REACTIONS (2)
  - ABORTION SPONTANEOUS [None]
  - PREGNANCY OF PARTNER [None]
